FAERS Safety Report 7959083-4 (Version None)
Quarter: 2011Q4

REPORT INFORMATION
  Report Type: 
  Country: None (occurrence: None)
  Receive Date: 20111206
  Receipt Date: 20111206
  Transmission Date: 20120403
  Serious: Yes (Life-Threatening)
  Sender: FDA-Public Use
  Company Number: None

PATIENT
  Age: 48 Year
  Sex: Male
  Weight: 186.4 kg

DRUGS (2)
  1. 0.45% NACL WITH 20MEQ KCL/L [Suspect]
     Indication: VOMITING
     Dosage: 125 ML/HR
     Route: 041
  2. 0.45% NACL WITH 20MEQ KCL/L [Suspect]
     Indication: PANCREATITIS ACUTE
     Dosage: 125 ML/HR
     Route: 041

REACTIONS (1)
  - BLOOD POTASSIUM INCREASED [None]
